FAERS Safety Report 21217943 (Version 1)
Quarter: 2022Q3

REPORT INFORMATION
  Report Type: Spontaneous
  Country: US (occurrence: None)
  Receive Date: 20220816
  Receipt Date: 20220816
  Transmission Date: 20221026
  Serious: No
  Sender: FDA-Public Use
  Company Number: US-ROCHE-3100551

PATIENT
  Sex: Female

DRUGS (1)
  1. ALECENSA [Suspect]
     Active Substance: ALECTINIB HYDROCHLORIDE
     Indication: Neoplasm malignant
     Route: 048
     Dates: start: 20220424

REACTIONS (9)
  - Abdominal distension [Unknown]
  - Peripheral swelling [Unknown]
  - Ill-defined disorder [Unknown]
  - Fatigue [Unknown]
  - Headache [Unknown]
  - Constipation [Unknown]
  - Muscular weakness [Unknown]
  - Hepatic enzyme increased [Unknown]
  - Weight increased [Unknown]
